FAERS Safety Report 8881937 (Version 1)
Quarter: 2012Q4

REPORT INFORMATION
  Report Type: 
  Country: FR (occurrence: FR)
  Receive Date: 20121102
  Receipt Date: 20121102
  Transmission Date: 20130627
  Serious: No
  Sender: FDA-Public Use
  Company Number: FR-JNJFOC-20121014991

PATIENT

DRUGS (1)
  1. DUROGESIC [Suspect]
     Indication: PAIN
     Dosage: any dosage involved
     Route: 062

REACTIONS (1)
  - Wrong technique in drug usage process [Not Recovered/Not Resolved]
